FAERS Safety Report 21379589 (Version 1)
Quarter: 2022Q3

REPORT INFORMATION
  Report Type: Spontaneous
  Country: US (occurrence: None)
  Receive Date: 20220923
  Receipt Date: 20220923
  Transmission Date: 20221026
  Serious: Yes (Other)
  Sender: FDA-Public Use
  Company Number: None

PATIENT
  Age: 22 Year
  Sex: Female

DRUGS (1)
  1. HUMIRA [Suspect]
     Active Substance: ADALIMUMAB
     Dosage: FREQUENCY : EVERY OTHER WEEK;?
     Route: 058
     Dates: start: 202112

REACTIONS (7)
  - Injection site pain [None]
  - Injection site erythema [None]
  - Rash macular [None]
  - Rash [None]
  - Insurance issue [None]
  - Therapy interrupted [None]
  - Injection site pain [None]

NARRATIVE: CASE EVENT DATE: 20220922
